FAERS Safety Report 18841549 (Version 4)
Quarter: 2021Q1

REPORT INFORMATION
  Report Type: Spontaneous
  Country: JP (occurrence: JP)
  Receive Date: 20210204
  Receipt Date: 20210309
  Transmission Date: 20210419
  Serious: Yes (Death, Other)
  Sender: FDA-Public Use
  Company Number: JP-AMGEN-JPNSP2021016449

PATIENT
  Age: 88 Year
  Sex: Female

DRUGS (7)
  1. RABEPRAZOLE SODIUM. [Concomitant]
     Active Substance: RABEPRAZOLE SODIUM
     Dosage: 10 MILLIGRAM, QD
  2. SUJANU [Concomitant]
     Active Substance: IPRAGLIFLOZIN L-PROLINE\SITAGLIPTIN PHOSPHATE
     Indication: DIABETES MELLITUS
     Dosage: 1 DOSAGE FORM (1 TABLET), QD
     Dates: start: 20200713, end: 20210116
  3. ELDECALCITOL [Concomitant]
     Active Substance: ELDECALCITOL
     Dosage: 0.75 MICROGRAM, QD
  4. EVENITY [Suspect]
     Active Substance: ROMOSOZUMAB-AQQG
     Indication: OSTEOPOROSIS
     Dosage: 210 MILLIGRAM, QMO
     Route: 058
     Dates: start: 20200713, end: 20210116
  5. LOSARHYD LD [Concomitant]
     Indication: HYPERTENSION
     Dosage: 1 DOSAGE FORM (1 TABLET), QD
     Dates: start: 20200713, end: 20210116
  6. CARVEDILOL. [Concomitant]
     Active Substance: CARVEDILOL
     Dosage: 2.5 MILLIGRAM, QD
  7. PARMODIA [Concomitant]
     Active Substance: PEMAFIBRATE
     Indication: HYPERLIPIDAEMIA
     Dosage: 0.2 MILLIGRAM ( 0.1 MG X2 TABETS), QD
     Dates: start: 20190629, end: 20210116

REACTIONS (2)
  - Vomiting [Unknown]
  - Sudden death [Fatal]

NARRATIVE: CASE EVENT DATE: 20210129
